FAERS Safety Report 9529401 (Version 1)
Quarter: 2013Q1

REPORT INFORMATION
  Report Type: Spontaneous
  Country: US (occurrence: None)
  Receive Date: 20130318
  Receipt Date: 20130318
  Transmission Date: 20140127
  Serious: Yes (Hospitalization, Other)
  Sender: FDA-Public Use
  Company Number: 1031USA008743

PATIENT
  Age: 64 Year
  Sex: Female

DRUGS (4)
  1. PEGINTRON (PEGINTERFERON ALFA-2B) POWDER FOR INJECTION [Suspect]
     Indication: HEPATITIS C
     Dosage: UNK
     Dates: start: 20130104
  2. RIBASPHERE (RIBAVIRIN) [Suspect]
     Indication: HEPATITIS C
     Dosage: UNK
     Dates: start: 20130104
  3. CLONAZEPAM (CLONAZEPAM) (CLONAZEPAM) [Concomitant]
  4. LISINOPRIL (LISINOPRIL) [Concomitant]

REACTIONS (18)
  - Dehydration [None]
  - Nervous system disorder [None]
  - Metabolic disorder [None]
  - Somnolence [None]
  - Memory impairment [None]
  - Hypertension [None]
  - Headache [None]
  - Decreased appetite [None]
  - Fatigue [None]
  - Malaise [None]
  - Depression [None]
  - Anxiety [None]
  - Disturbance in attention [None]
  - Dizziness [None]
  - Chills [None]
  - Decreased appetite [None]
  - Asthenia [None]
  - Fatigue [None]
